FAERS Safety Report 12814691 (Version 2)
Quarter: 2017Q4

REPORT INFORMATION
  Report Type: Report from Study
  Country: US (occurrence: US)
  Receive Date: 20161005
  Receipt Date: 20171018
  Transmission Date: 20180320
  Serious: No
  Sender: FDA-Public Use
  Company Number: US-AMGEN-USASP2015139907

PATIENT
  Age: 77 Year
  Sex: Female

DRUGS (1)
  1. PROLIA [Suspect]
     Active Substance: DENOSUMAB
     Indication: OSTEOPOROSIS
     Dosage: UNK
     Route: 065
     Dates: start: 201511

REACTIONS (8)
  - Nasopharyngitis [Unknown]
  - Influenza [Unknown]
  - Therapeutic response decreased [Unknown]
  - Myalgia [Unknown]
  - Musculoskeletal disorder [Unknown]
  - Upper respiratory tract infection [Unknown]
  - Mobility decreased [Unknown]
  - Inappropriate schedule of drug administration [Unknown]

NARRATIVE: CASE EVENT DATE: 2015
